FAERS Safety Report 8297532-5 (Version None)
Quarter: 2012Q2

REPORT INFORMATION
  Report Type: 
  Country: None (occurrence: None)
  Receive Date: 20120417
  Receipt Date: 20120410
  Transmission Date: 20120825
  Serious: Yes (Hospitalization)
  Sender: FDA-Public Use
  Company Number: 2012SP015255

PATIENT
  Age: 63 Year
  Sex: Male
  Weight: 83 kg

DRUGS (3)
  1. PEGASYS [Suspect]
     Indication: HEPATITIS C
     Dosage: 180 MCG, QW, SC
     Route: 058
     Dates: start: 20120101, end: 20120309
  2. VICTRELIS [Suspect]
     Indication: HEPATITIS C
     Dosage: 800 MG, TID, PO
     Route: 048
     Dates: start: 20120210, end: 20120309
  3. COPEGUS [Suspect]
     Indication: HEPATITIS C
     Dosage: 1000 MG, QD, PO
     Route: 048
     Dates: start: 20120101, end: 20120309

REACTIONS (1)
  - PANCREATITIS ACUTE [None]
